FAERS Safety Report 21704957 (Version 1)
Quarter: 2022Q4

REPORT INFORMATION
  Report Type: Spontaneous
  Country: US (occurrence: US)
  Receive Date: 20221209
  Receipt Date: 20221209
  Transmission Date: 20230112
  Serious: Yes (Other)
  Sender: FDA-Public Use
  Company Number: US-drreddys-LIT/USA/22/0157753

PATIENT
  Age: 62 Year
  Sex: Male

DRUGS (5)
  1. LENALIDOMIDE [Suspect]
     Active Substance: LENALIDOMIDE
     Indication: Plasma cell myeloma
  2. LENALIDOMIDE [Suspect]
     Active Substance: LENALIDOMIDE
  3. TACROLIMUS [Suspect]
     Active Substance: TACROLIMUS
     Indication: Rash
  4. PREGABALIN [Suspect]
     Active Substance: PREGABALIN
     Indication: Rash
  5. CLOBETASOL [Suspect]
     Active Substance: CLOBETASOL
     Indication: Rash

REACTIONS (2)
  - Eczema [Recovered/Resolved]
  - Product use in unapproved indication [Unknown]
